FAERS Safety Report 21100805 (Version 1)
Quarter: 2022Q3

REPORT INFORMATION
  Report Type: Spontaneous
  Country: US (occurrence: US)
  Receive Date: 20220719
  Receipt Date: 20220719
  Transmission Date: 20221027
  Serious: No
  Sender: FDA-Public Use
  Company Number: US-PFIZER INC-202200961085

PATIENT
  Age: 61 Year
  Sex: Male

DRUGS (7)
  1. PAXLOVID [Suspect]
     Active Substance: NIRMATRELVIR\RITONAVIR
     Indication: COVID-19 treatment
     Dosage: UNK
     Dates: start: 20220704, end: 20220708
  2. SILODOSIN [Suspect]
     Active Substance: SILODOSIN
     Dosage: 8 MG
     Dates: start: 20160101, end: 20220704
  3. IRBESARTAN [Concomitant]
     Active Substance: IRBESARTAN
     Dosage: 75 MG
     Dates: start: 20000101
  4. CIMZIA [Concomitant]
     Active Substance: CERTOLIZUMAB PEGOL
     Dosage: UNK
     Dates: start: 20160101
  5. WELLBUTRIN XL [Concomitant]
     Active Substance: BUPROPION HYDROCHLORIDE
     Dosage: 300 MG
     Dates: start: 20150101, end: 20220704
  6. CLONAZEPAM [Concomitant]
     Active Substance: CLONAZEPAM
     Dosage: 0.5 MG
     Dates: start: 20000101, end: 20220704
  7. TADALAFIL [Concomitant]
     Active Substance: TADALAFIL
     Dosage: 5 MG
     Dates: start: 20130101, end: 20220704

REACTIONS (4)
  - Cough [Not Recovered/Not Resolved]
  - Nasal congestion [Not Recovered/Not Resolved]
  - Pyrexia [Not Recovered/Not Resolved]
  - Contraindicated product administered [Unknown]

NARRATIVE: CASE EVENT DATE: 20220711
